FAERS Safety Report 10944670 (Version 1)
Quarter: 2015Q1

REPORT INFORMATION
  Report Type: Spontaneous
  Country: US (occurrence: US)
  Receive Date: 20150323
  Receipt Date: 20150323
  Transmission Date: 20150721
  Serious: No
  Sender: FDA-Public Use
  Company Number: US-PFIZER INC-2015098304

PATIENT
  Sex: Female

DRUGS (1)
  1. PREMARIN [Suspect]
     Active Substance: ESTROGENS, CONJUGATED

REACTIONS (5)
  - Product quality issue [Unknown]
  - Reaction to preservatives [Unknown]
  - Pyrexia [Unknown]
  - Urticaria [Unknown]
  - Dysuria [Unknown]
